FAERS Safety Report 8813738 (Version 1)
Quarter: 2012Q4

REPORT INFORMATION
  Report Type: 
  Country: FR (occurrence: FR)
  Receive Date: 20120928
  Receipt Date: 20120928
  Transmission Date: 20130627
  Serious: Yes (Life-Threatening, Hospitalization)
  Sender: FDA-Public Use
  Company Number: FR-ROCHE-1130345

PATIENT
  Age: 72 Year
  Sex: Male

DRUGS (10)
  1. VALIUM [Suspect]
     Indication: PRODUCT USED FOR UNKNOWN INDICATION
     Route: 042
     Dates: start: 20120516
  2. TRANXENE [Suspect]
     Indication: PRODUCT USED FOR UNKNOWN INDICATION
     Route: 042
     Dates: start: 20120516
  3. MORPHINE [Suspect]
     Indication: PRODUCT USED FOR UNKNOWN INDICATION
     Route: 042
     Dates: start: 20120516
  4. STALEVO [Concomitant]
     Route: 048
  5. OTRASEL [Concomitant]
     Route: 048
  6. SIFROL [Concomitant]
     Route: 048
  7. SEROPLEX [Concomitant]
     Route: 048
  8. LEXOMIL [Concomitant]
     Route: 048
  9. STILNOX [Concomitant]
     Route: 048
  10. MADOPAR [Concomitant]
     Route: 048
     Dates: end: 20120516

REACTIONS (2)
  - Pneumonia aspiration [Recovered/Resolved]
  - Respiratory disorder [Recovered/Resolved]
